FAERS Safety Report 13477605 (Version 7)
Quarter: 2017Q3

REPORT INFORMATION
  Report Type: Spontaneous
  Country: GB (occurrence: GB)
  Receive Date: 20170425
  Receipt Date: 20170825
  Transmission Date: 20171127
  Serious: Yes (Other)
  Sender: FDA-Public Use
  Company Number: GB-PFIZER INC-2017176092

PATIENT
  Sex: Female

DRUGS (16)
  1. ITRACONAZOLE. [Suspect]
     Active Substance: ITRACONAZOLE
     Dosage: UNK
  2. IDARUBICIN HCL [Suspect]
     Active Substance: IDARUBICIN HYDROCHLORIDE
     Dosage: 5 MG/M2, UNK (ON DAY 1-4 FOR COURSE 2)
     Route: 040
     Dates: start: 201702, end: 201702
  3. MACROGOL [Suspect]
     Active Substance: POLYETHYLENE GLYCOLS
     Dosage: UNK
  4. DEXAMETHASONE SODIUM PHOSPHATE. [Suspect]
     Active Substance: DEXAMETHASONE SODIUM PHOSPHATE
     Dosage: UNK
  5. IDARUBICIN HCL [Suspect]
     Active Substance: IDARUBICIN HYDROCHLORIDE
     Dosage: 12 MG/M2, UNK (ON DAY 1 ONLY FOR COURSE4, ON DAY 2, 4, 6 AND 8 FOR COURSE1)
     Route: 040
     Dates: start: 201702, end: 201702
  6. PARACETAMOL [Suspect]
     Active Substance: ACETAMINOPHEN
     Dosage: UNK
  7. IDARUBICIN HCL [Suspect]
     Active Substance: IDARUBICIN HYDROCHLORIDE
     Indication: ACUTE PROMYELOCYTIC LEUKAEMIA
     Dosage: 20 MG ON DAY 2, 4, 6 AND 8 FOR A PERIOD OF 7 DAYS
     Route: 040
     Dates: start: 201702, end: 201702
  8. ACICLOVIR [Suspect]
     Active Substance: ACYCLOVIR
     Indication: ORAL HERPES
     Dosage: UNK
     Route: 048
  9. TRETINOIN. [Suspect]
     Active Substance: TRETINOIN
     Indication: ACUTE PROMYELOCYTIC LEUKAEMIA
     Dosage: 40 MG (22.5 MG/M2 TWICE IN DAY), 2X/DAY
     Route: 048
     Dates: start: 20170207, end: 20170308
  10. ALLOPURINOL. [Suspect]
     Active Substance: ALLOPURINOL
     Dosage: 700 MG, FOR 7 DAYS
  11. NEUPOGEN [Suspect]
     Active Substance: FILGRASTIM
     Dosage: UNK, SECOND TRIMESTER OF GESTATION
  12. PROCHLORPERAZINE. [Suspect]
     Active Substance: PROCHLORPERAZINE
     Dosage: UNK
  13. GENTAMICIN SULFATE. [Suspect]
     Active Substance: GENTAMICIN SULFATE
     Dosage: UNK
  14. CYCLIZINE [Suspect]
     Active Substance: CYCLIZINE
     Dosage: UNK
  15. OMEPRAZOLE. [Suspect]
     Active Substance: OMEPRAZOLE
     Dosage: UNK
  16. TAZOCIN [Suspect]
     Active Substance: PIPERACILLIN SODIUM\TAZOBACTAM SODIUM
     Dosage: UNK

REACTIONS (6)
  - Thrombocytopenia [Recovered/Resolved]
  - Product use issue [Unknown]
  - Oral herpes [Recovered/Resolved]
  - Mucosal inflammation [Recovered/Resolved]
  - Neutropenia [Recovered/Resolved]
  - Neutropenic sepsis [Recovered/Resolved]

NARRATIVE: CASE EVENT DATE: 20170207
